FAERS Safety Report 13234374 (Version 1)
Quarter: 2017Q1

REPORT INFORMATION
  Report Type: Spontaneous
  Country: US (occurrence: US)
  Receive Date: 20170215
  Receipt Date: 20170215
  Transmission Date: 20170428
  Serious: No
  Sender: FDA-Public Use
  Company Number: None

PATIENT
  Age: 64 Year
  Sex: Female
  Weight: 75.36 kg

DRUGS (1)
  1. ZOLPIDEM [Suspect]
     Active Substance: ZOLPIDEM\ZOLPIDEM TARTRATE
     Indication: INSOMNIA
     Dosage: 10MG 1 PILL BEDTIME MOUTH
     Route: 048

REACTIONS (6)
  - Nervousness [None]
  - Hallucination, visual [None]
  - Abnormal dreams [None]
  - Night sweats [None]
  - Hallucination, auditory [None]
  - Middle insomnia [None]

NARRATIVE: CASE EVENT DATE: 20170126
